FAERS Safety Report 4456259-8 (Version None)
Quarter: 2004Q3

REPORT INFORMATION
  Report Type: 
  Country: None (occurrence: None)
  Receive Date: 20040917
  Receipt Date: 20040827
  Transmission Date: 20050211
  Serious: Yes (Hospitalization)
  Sender: FDA-Public Use
  Company Number: USA040876745

PATIENT
  Age: 83 Year
  Sex: Female
  Weight: 85 kg

DRUGS (4)
  1. HUMALOG [Suspect]
     Dosage: 12 U IN THE EVENING
     Dates: start: 20000101
  2. HUMALOG MIX 75/25 [Suspect]
     Dosage: 19 U IN THE MORNING
     Dates: start: 20000101
  3. HUMULIN N [Suspect]
     Dosage: 28 U AT BEDTIME
     Dates: start: 20000101
  4. COUMADIN [Concomitant]

REACTIONS (3)
  - CARDIAC FAILURE CONGESTIVE [None]
  - DYSPNOEA [None]
  - PHARMACEUTICAL PRODUCT COMPLAINT [None]
